FAERS Safety Report 8158553-6 (Version None)
Quarter: 2012Q1

REPORT INFORMATION
  Report Type: 
  Country: None (occurrence: None)
  Receive Date: 20120213
  Receipt Date: 20120201
  Transmission Date: 20120608
  Serious: Yes (Other)
  Sender: FDA-Public Use
  Company Number: 2012031071

PATIENT
  Sex: Female
  Weight: 61.2356 kg

DRUGS (11)
  1. RHOPHYLAC [Concomitant]
  2. RHOPHYLAC [Concomitant]
  3. RHOPHYLAC [Concomitant]
  4. RHOPHYLAC [Suspect]
     Indication: RHESUS INCOMPATIBILITY
     Dosage: (300 MCG VIAL INTRAVENOUS (NOT OTHERWISE SPECIFIED)), (300 MCG VIAL INTRAVENOUS (NOT OTHERWISE SPEC
     Route: 042
     Dates: start: 20120119, end: 20120120
  5. RHOPHYLAC [Suspect]
     Indication: RHESUS INCOMPATIBILITY
     Dosage: (300 MCG VIAL INTRAVENOUS (NOT OTHERWISE SPECIFIED)), (300 MCG VIAL INTRAVENOUS (NOT OTHERWISE SPEC
     Route: 042
     Dates: start: 20120119, end: 20120120
  6. RHOPHYLAC [Suspect]
     Indication: RHESUS INCOMPATIBILITY
     Dosage: (300 MCG VIAL INTRAVENOUS (NOT OTHERWISE SPECIFIED)), (300 MCG VIAL INTRAVENOUS (NOT OTHERWISE SPEC
     Route: 042
     Dates: start: 20120119, end: 20120120
  7. RHOPHYLAC [Suspect]
     Indication: RHESUS INCOMPATIBILITY
     Dosage: (300 MCG VIAL INTRAVENOUS (NOT OTHERWISE SPECIFIED)), (300 MCG VIAL INTRAVENOUS (NOT OTHERWISE SPEC
     Route: 042
     Dates: start: 20120119, end: 20120120
  8. RHOPHYLAC [Suspect]
     Indication: RHESUS INCOMPATIBILITY
     Dosage: (300 MCG VIAL INTRAVENOUS (NOT OTHERWISE SPECIFIED)), (300 MCG VIAL INTRAVENOUS (NOT OTHERWISE SPEC
     Route: 042
     Dates: start: 20120119, end: 20120120
  9. RHOPHYLAC [Suspect]
     Indication: RHESUS INCOMPATIBILITY
     Dosage: (300 MCG VIAL INTRAVENOUS (NOT OTHERWISE SPECIFIED)), (300 MCG VIAL INTRAVENOUS (NOT OTHERWISE SPEC
     Route: 042
     Dates: start: 20120119, end: 20120120
  10. RHOPHYLAC [Suspect]
     Indication: RHESUS INCOMPATIBILITY
     Dosage: (300 MCG VIAL INTRAVENOUS (NOT OTHERWISE SPECIFIED)), (300 MCG VIAL INTRAVENOUS (NOT OTHERWISE SPEC
     Route: 042
     Dates: start: 20120119, end: 20120120
  11. RHOPHYLAC [Suspect]
     Indication: RHESUS INCOMPATIBILITY
     Dosage: (300 MCG VIAL INTRAVENOUS (NOT OTHERWISE SPECIFIED)), (300 MCG VIAL INTRAVENOUS (NOT OTHERWISE SPEC
     Route: 042
     Dates: start: 20120119, end: 20120120

REACTIONS (7)
  - BLOOD PRESSURE SYSTOLIC INCREASED [None]
  - RESPIRATORY DISTRESS [None]
  - BLOOD IMMUNOGLOBULIN A DECREASED [None]
  - CHEST DISCOMFORT [None]
  - HEART RATE INCREASED [None]
  - PYREXIA [None]
  - ABDOMINAL PAIN [None]
